FAERS Safety Report 12079091 (Version 1)
Quarter: 2016Q1

REPORT INFORMATION
  Report Type: Spontaneous
  Country: US (occurrence: US)
  Receive Date: 20160216
  Receipt Date: 20160216
  Transmission Date: 20160526
  Serious: Yes (Other)
  Sender: FDA-Public Use
  Company Number: US-PFIZER INC-2014293597

PATIENT
  Age: 80 Year
  Sex: Male
  Weight: 81 kg

DRUGS (22)
  1. DOXAZOSIN [Concomitant]
     Active Substance: DOXAZOSIN\DOXAZOSIN MESYLATE
     Dosage: 2 MG, UNK
  2. DOXAZOSIN [Concomitant]
     Active Substance: DOXAZOSIN\DOXAZOSIN MESYLATE
     Dosage: 4 MG, UNK
  3. MENINGOCOCCAL POLYSACCHARIDE VACCINE A NOS [Concomitant]
     Active Substance: MENINGOCOCCAL POLYSACCHARIDE VACCINE A\NEISSERIA MENINGITIDIS GROUP A CAPSULAR POLYSACCHARIDE ANTIGEN
     Indication: IMMUNISATION
     Dosage: UNK
     Dates: start: 2006
  4. AMLODIPINE [Concomitant]
     Active Substance: AMLODIPINE BESYLATE
     Dosage: 5 MG, 2X/DAY
     Route: 048
  5. LANTUS SOLOSTAR [Concomitant]
     Active Substance: INSULIN GLARGINE
     Dosage: 3 ML, UNK (100 UNIT/ML )
     Route: 058
  6. MAGNESIUM OXIDE. [Concomitant]
     Active Substance: MAGNESIUM OXIDE
     Dosage: 400 MG, DAILY
     Route: 048
  7. SANDOSTATIN [Concomitant]
     Active Substance: OCTREOTIDE ACETATE
     Dosage: 30 MG, UNK
     Route: 030
     Dates: start: 20150206
  8. SUTENT [Suspect]
     Active Substance: SUNITINIB MALATE
     Indication: NEUROENDOCRINE CARCINOMA
     Dosage: 37.5 MG, DAILY
     Route: 048
     Dates: start: 20140718, end: 20150529
  9. HUMALOG [Concomitant]
     Active Substance: INSULIN LISPRO
     Dosage: 100 IU/ML, UNK (AS DIRECTED)
     Route: 058
     Dates: start: 20130913
  10. TETANUS DIPHTHERIA [Concomitant]
     Indication: IMMUNISATION
     Dosage: UNK
  11. CENTRUM SILVER [Concomitant]
     Active Substance: MINERALS\VITAMINS
     Dosage: UNK UNK, DAILY
     Dates: start: 20140204
  12. FUROSEMIDE. [Concomitant]
     Active Substance: FUROSEMIDE
     Dosage: 40 MG, UNK
  13. LEVOTHYROXINE. [Concomitant]
     Active Substance: LEVOTHYROXINE
     Dosage: 50 UG, DAILY
     Route: 048
  14. VITAMIN B COMPLEX [Concomitant]
     Active Substance: CYANOCOBALAMIN\DEXPANTHENOL\NIACINAMIDE\PYRIDOXINE HYDROCHLORIDE\RIBOFLAVIN 5^-PHOSPHATE SODIUM\THIAMINE HYDROCHLORIDE\VITAMIN B COMPLEX
     Dosage: 1000 UG, DAILY
     Route: 048
     Dates: start: 20151103
  15. PNEUMOCOCCAL POLYSACCHARIDE VACCINE [Concomitant]
     Active Substance: PNEUMOCOCCAL VACCINE POLYVALENT
     Indication: IMMUNISATION
     Dosage: UNK
     Dates: start: 20021011
  16. PNEUMOCOCCAL POLYSACCHARIDE VACCINE [Concomitant]
     Active Substance: PNEUMOCOCCAL VACCINE POLYVALENT
     Dosage: UNK
     Dates: start: 20130529
  17. AVAPRO [Concomitant]
     Active Substance: IRBESARTAN
     Dosage: 75 MG, DAILY (EVERY DAY)
     Route: 048
     Dates: start: 20141021
  18. INFLUENZA [Concomitant]
     Active Substance: INFLUENZA VIRUS VACCINE
     Indication: IMMUNISATION
     Dosage: UNK
     Dates: start: 201210
  19. VARICELLA ZOSTER VACCINE [Concomitant]
     Active Substance: VARICELLA-ZOSTER VIRUS STRAIN OKA/MERCK LIVE ANTIGEN
     Indication: IMMUNISATION
     Dates: start: 2007
  20. EFFER K 20 MEQ [Concomitant]
     Dosage: UNK
  21. INFLUENZA [Concomitant]
     Active Substance: INFLUENZA VIRUS VACCINE
     Dosage: UNK
     Route: 030
     Dates: start: 20131025
  22. IRBESARTAN. [Concomitant]
     Active Substance: IRBESARTAN
     Dosage: 75 MG, DAILY (TAKE 0.5 TABLET(S) EVERY DAY )
     Route: 048

REACTIONS (8)
  - Acute kidney injury [Unknown]
  - Oedema [Unknown]
  - Proteinuria [Unknown]
  - Hypertension [Unknown]
  - Diarrhoea [Unknown]
  - Blood glucose increased [Unknown]
  - Dehydration [Unknown]
  - Condition aggravated [Unknown]
